FAERS Safety Report 7264459-7 (Version None)
Quarter: 2011Q1

REPORT INFORMATION
  Report Type: 
  Country: None (occurrence: None)
  Receive Date: 20110131
  Receipt Date: 20110119
  Transmission Date: 20110831
  Serious: Yes (Hospitalization)
  Sender: FDA-Public Use
  Company Number: IT-JNJFOC-20091201757

PATIENT
  Age: 80 Year
  Sex: Female

DRUGS (2)
  1. TRAMADOL HYDROCHLORIDE [Suspect]
     Indication: MUSCULOSKELETAL PAIN
     Route: 048
  2. TRAMADOL HYDROCHLORIDE [Suspect]
     Route: 048

REACTIONS (5)
  - HYPOTONIA [None]
  - HEAD INJURY [None]
  - RIB FRACTURE [None]
  - WRIST FRACTURE [None]
  - BALANCE DISORDER [None]
